FAERS Safety Report 5570203-1 (Version None)
Quarter: 2007Q4

REPORT INFORMATION
  Report Type: 
  Country: None (occurrence: None)
  Receive Date: 20071217
  Receipt Date: 20071207
  Transmission Date: 20080405
  Serious: Yes (Hospitalization)
  Sender: FDA-Public Use
  Company Number: 2007SP024749

PATIENT
  Age: 73 Year
  Sex: Female

DRUGS (1)
  1. INTRON A [Suspect]
     Indication: CARCINOID SYNDROME
     Dosage: 3 MIU; TIW; SC
     Route: 058
     Dates: start: 20060501, end: 20071026

REACTIONS (3)
  - NO THERAPEUTIC RESPONSE [None]
  - UVEITIS [None]
  - VISUAL DISTURBANCE [None]
